FAERS Safety Report 5409498-3 (Version None)
Quarter: 2007Q3

REPORT INFORMATION
  Report Type: 
  Country: None (occurrence: None)
  Receive Date: 20070809
  Receipt Date: 20070731
  Transmission Date: 20080115
  Serious: Yes (Other)
  Sender: FDA-Public Use
  Company Number: HQWYE314131JUL07

PATIENT
  Sex: Female

DRUGS (5)
  1. AMIODARONE HCL [Suspect]
     Indication: ATRIAL FIBRILLATION
     Dosage: UNSPECIFIED
     Route: 042
  2. LISINOPRIL [Concomitant]
  3. AMIODARONE HCL [Suspect]
     Dosage: UNSPECIFIED
     Route: 048
  4. AMIODARONE HCL [Suspect]
     Route: 048
  5. SOTALOL HYDROCHLORIDE [Concomitant]
     Indication: HYPERTENSION

REACTIONS (4)
  - FATIGUE [None]
  - HYPOTENSION [None]
  - PAPILLOEDEMA [None]
  - SYNCOPE [None]
